FAERS Safety Report 5821986-4 (Version None)
Quarter: 2008Q3

REPORT INFORMATION
  Report Type: 
  Country: None (occurrence: None)
  Receive Date: 20080724
  Receipt Date: 20080711
  Transmission Date: 20090109
  Serious: Yes (Other)
  Sender: FDA-Public Use
  Company Number: FR-MERCK-0505FRA00059M

PATIENT
  Age: 41 Year
  Sex: Female

DRUGS (6)
  1. SINGULAIR [Suspect]
     Indication: ASTHMA
     Route: 048
  2. ACETYLCYSTEINE [Suspect]
     Route: 048
  3. FENSPIRIDE HYDROCHLORIDE [Suspect]
     Route: 048
  4. CETIRIZINE HYDROCHLORIDE [Suspect]
     Route: 048
  5. CEFPODOXIME PROXETIL [Suspect]
     Route: 048
  6. PREDNISONE [Suspect]
     Route: 048

REACTIONS (2)
  - ABORTION [None]
  - DRUG EXPOSURE DURING PREGNANCY [None]
